FAERS Safety Report 9680757 (Version 1)
Quarter: 2013Q4

REPORT INFORMATION
  Report Type: Spontaneous
  Country: US (occurrence: US)
  Receive Date: 20131111
  Receipt Date: 20131111
  Transmission Date: 20140711
  Serious: No
  Sender: FDA-Public Use
  Company Number: PHEH2013US023032

PATIENT
  Age: 30 Year
  Sex: Female

DRUGS (5)
  1. TASIGNA [Suspect]
     Dosage: 300 MG, BID
     Route: 048
     Dates: start: 20131025
  2. CYMBALTA [Concomitant]
  3. KLONOPIN [Concomitant]
  4. METHADONE [Concomitant]
  5. OXYCODONE [Concomitant]

REACTIONS (2)
  - Fatigue [Unknown]
  - Urticaria [Unknown]
